FAERS Safety Report 9553879 (Version 1)
Quarter: 2013Q3

REPORT INFORMATION
  Report Type: Spontaneous
  Country: US (occurrence: None)
  Receive Date: 20130814
  Receipt Date: 20130814
  Transmission Date: 20140515
  Serious: Yes (Life-Threatening, Hospitalization)
  Sender: FDA-Public Use
  Company Number: FK201300717

PATIENT
  Age: 54 Year
  Sex: Female
  Weight: 91 kg

DRUGS (20)
  1. MIDAZOLAM HYDROCHLORIDE INJECTION (MIDAZOLAM HYDROCHLORIDE) (MIDAZOLAM HYDROCHLORIDE) [Suspect]
     Indication: PRODUCT USED FOR UNKNOWN INDICATION
     Dosage: 100 MG , INTRAVENOUS (NOT OTHERWISE SPECIFIED)
     Route: 042
     Dates: start: 20130212, end: 20130214
  2. APAP (PARACETAMOL) [Concomitant]
  3. ACETAZOLAMIDE (ACETAZOLAMIDE) (ACETAZOLAMIDE) [Concomitant]
  4. ACYCLOVIR (ACICLOVIR) (ACICLOVIR) [Concomitant]
  5. ENOXAPARIN (ENOXAPARIN) (ENOXAPARIN) [Concomitant]
  6. ENOXAPARIN (ENOXAPARIN) (ETNOXAPARIN) [Concomitant]
  7. ETOMIDATE (ETOMIDATE) (ETOMIDATE) [Concomitant]
  8. FUROSEMIDE [Concomitant]
  9. FENTANYL (FENTANYL) (FENTANYL) [Concomitant]
  10. IMIPENEM / CILASTATIN (PRIMAXIN) (PRIMAXIN) [Concomitant]
  11. DUONAB (COMBIVENT) )COMBIVENT) [Concomitant]
  12. KETOROLAC (KETOROLAC) (KETORLAC) [Concomitant]
  13. LINEZOLID (KETOROLAC) (KETOROLAC) [Concomitant]
  14. LINEZOLID (LINEZOLID) (LINEZOLID) [Concomitant]
  15. METORPOLOL (METOPROLOL) (METOPROLOL) [Concomitant]
  16. METRONIDAZOLE (METRONIDAZOLE) (METRONIDAZOLE) [Concomitant]
  17. PANTOPRAZOL (PANTOPRAZOLEE SODIUM) (PANTOPRAZOLE SODIUM) [Concomitant]
  18. PIPERACILLIN SODIUM W/TAZOBACTAM SODIUM [Concomitant]
  19. KCL (POTASSIUM CLORIDE) (POTASSIUM CHLORIDE) [Concomitant]
  20. VANCOMYCIN (VANCOMYCIN) (VANCOMYCIN) [Concomitant]

REACTIONS (1)
  - Pyrexia [None]
